FAERS Safety Report 7512664-4 (Version None)
Quarter: 2011Q2

REPORT INFORMATION
  Report Type: 
  Country: None (occurrence: None)
  Receive Date: 20110531
  Receipt Date: 20091022
  Transmission Date: 20111010
  Serious: Yes (Other)
  Sender: FDA-Public Use
  Company Number: US-BAYER-200936807NA

PATIENT
  Age: 64 Year
  Sex: Male
  Weight: 107 kg

DRUGS (17)
  1. ALTACE [Concomitant]
     Dosage: 10 MG, QD
     Dates: start: 20031001
  2. DOBUTAMINE HYDROCHLORIDE [Concomitant]
     Dosage: UNK
     Dates: start: 20031011
  3. LANTUS [Concomitant]
     Dosage: 90 UNITS PM
     Dates: start: 20031001
  4. HEPARIN [Concomitant]
     Dosage: 10,000 UNITS
     Dates: start: 20031011
  5. ETOMIDATE [Concomitant]
     Dosage: UNK
     Dates: start: 20031011
  6. TRASYLOL [Suspect]
     Indication: CORONARY ARTERY BYPASS
     Dosage: UNK
     Route: 042
     Dates: start: 20031011
  7. PLAVIX [Concomitant]
     Dosage: 75 MG, QD
     Dates: start: 20031001
  8. ZOCOR [Concomitant]
     Dosage: 40 MG, UNK
     Dates: start: 20031001
  9. HEPARIN [Concomitant]
     Dosage: 30000 U, UNK
     Dates: start: 20031011
  10. ACETYLSALICYLIC ACID SRT [Concomitant]
     Dosage: 325 MG, QD
     Dates: start: 20031001
  11. VERSED [Concomitant]
     Dosage: UNK
     Dates: start: 20031011
  12. ALBUMIN (HUMAN) [Concomitant]
  13. STARLIX [Concomitant]
     Dosage: 120 MG, QD
     Dates: start: 20031001
  14. XENICAL [Concomitant]
     Dosage: 120 MG, QD
     Dates: start: 20031001
  15. TRICOR [Concomitant]
     Dosage: 67 MG, QD
     Dates: start: 20031001
  16. INSULIN [Concomitant]
     Dosage: 7 UNITS/HOUR
     Route: 042
     Dates: start: 20031011
  17. PROTAMINE SULFATE [Concomitant]
     Dosage: 400 MG, UNK
     Dates: start: 20031011

REACTIONS (10)
  - FEAR [None]
  - RENAL FAILURE [None]
  - EMOTIONAL DISTRESS [None]
  - STRESS [None]
  - INJURY [None]
  - RENAL INJURY [None]
  - PAIN [None]
  - ANHEDONIA [None]
  - UNEVALUABLE EVENT [None]
  - ANXIETY [None]
